FAERS Safety Report 6405739-4 (Version None)
Quarter: 2009Q4

REPORT INFORMATION
  Report Type: 
  Country: None (occurrence: None)
  Receive Date: 20091019
  Receipt Date: 20091009
  Transmission Date: 20100525
  Serious: Yes (Disabling, Other)
  Sender: FDA-Public Use
  Company Number: GB-ABBOTT-09P-167-0600249-00

PATIENT
  Age: 35 Year
  Sex: Male

DRUGS (8)
  1. HUMIRA [Suspect]
     Indication: ANKYLOSING SPONDYLITIS
     Dates: start: 20060701, end: 20080818
  2. METHOTREXATE [Concomitant]
     Indication: ANKYLOSING SPONDYLITIS
     Dosage: 12.5 NULL
     Route: 048
     Dates: end: 20061101
  3. METHOTREXATE [Concomitant]
     Dosage: NOT CHANGED
     Route: 048
  4. SULFASALAZINE [Concomitant]
     Indication: ANKYLOSING SPONDYLITIS
     Route: 048
  5. FOLIC ACID [Concomitant]
     Indication: ANKYLOSING SPONDYLITIS
     Route: 048
  6. CO-CODAMOL [Concomitant]
     Indication: DRUG USE FOR UNKNOWN INDICATION
  7. ENBREL [Concomitant]
     Indication: ANKYLOSING SPONDYLITIS
     Route: 058
     Dates: start: 20080818
  8. CORTICOSTEROIDS [Concomitant]
     Indication: DRUG USE FOR UNKNOWN INDICATION

REACTIONS (20)
  - ARTHRALGIA [None]
  - BLEPHAROSPASM [None]
  - C-REACTIVE PROTEIN INCREASED [None]
  - CUSHINGOID [None]
  - DRUG INTOLERANCE [None]
  - FACIAL PAIN [None]
  - HEADACHE [None]
  - HYPERLIPIDAEMIA [None]
  - INFLAMMATION [None]
  - INJECTION SITE PAIN [None]
  - MUSCLE TWITCHING [None]
  - MUSCULAR WEAKNESS [None]
  - MUSCULOSKELETAL STIFFNESS [None]
  - NASOPHARYNGITIS [None]
  - NECK PAIN [None]
  - NERVOUS SYSTEM DISORDER [None]
  - POSTURE ABNORMAL [None]
  - RESTLESS LEGS SYNDROME [None]
  - TREMOR [None]
  - VISUAL IMPAIRMENT [None]
